FAERS Safety Report 13239944 (Version 2)
Quarter: 2017Q1

REPORT INFORMATION
  Report Type: Spontaneous
  Country: US (occurrence: US)
  Receive Date: 20170216
  Receipt Date: 20170223
  Transmission Date: 20170428
  Serious: No
  Sender: FDA-Public Use
  Company Number: US-PFIZER INC-2017067913

PATIENT
  Age: 78 Year
  Sex: Female

DRUGS (2)
  1. LYRICA [Suspect]
     Active Substance: PREGABALIN
     Dosage: 200 MG, 3X/DAY
     Route: 048
  2. LYRICA [Suspect]
     Active Substance: PREGABALIN
     Dosage: 600 MG, DAILY(2 CAPS CAPSULE BY MOUTH IN THE AM AND 1 IN THE PM)
     Route: 048

REACTIONS (2)
  - Muscle spasms [Unknown]
  - Essential hypertension [Unknown]
